FAERS Safety Report 5123115-1 (Version None)
Quarter: 2006Q4

REPORT INFORMATION
  Report Type: 
  Country: None (occurrence: None)
  Receive Date: 20061005
  Receipt Date: 20060929
  Transmission Date: 20070319
  Serious: Yes (Hospitalization, Other)
  Sender: FDA-Public Use
  Company Number: HQWYE377129SEP06

PATIENT
  Age: 50 Year
  Sex: Male

DRUGS (3)
  1. TYGACIL [Suspect]
     Indication: PELVIC ABSCESS
     Dosage: 50 MG 2X PER 1 DAY, INTRAVENOUS BOLUS
     Route: 040
     Dates: start: 20060801, end: 20060901
  2. CIPRO [Suspect]
     Dosage: 500 MG 2X PER 1 DAY, ORAL
     Route: 048
     Dates: start: 20060801
  3. UNSPECIFIED ANTIHYPERTENSIVE AGENT [Concomitant]

REACTIONS (2)
  - DRUG HYPERSENSITIVITY [None]
  - HYPOTENSION [None]
